FAERS Safety Report 8260813-5 (Version None)
Quarter: 2012Q1

REPORT INFORMATION
  Report Type: 
  Country: None (occurrence: None)
  Receive Date: 20120327
  Receipt Date: 20090610
  Transmission Date: 20120608
  Serious: Yes (Other)
  Sender: FDA-Public Use
  Company Number: PHEH2009US04118

PATIENT
  Age: 62 Year
  Sex: Male

DRUGS (2)
  1. GLEEVEC [Suspect]
     Indication: CHRONIC MYELOID LEUKAEMIA
     Dosage: 800 MG, ORAL
     Route: 048
  2. ATRIPLA [Suspect]
     Indication: HIV INFECTION

REACTIONS (3)
  - DRUG INTERACTION [None]
  - THERAPEUTIC RESPONSE DECREASED [None]
  - CHROMOSOME ANALYSIS ABNORMAL [None]
